FAERS Safety Report 4924672-8 (Version None)
Quarter: 2006Q1

REPORT INFORMATION
  Report Type: 
  Country: None (occurrence: None)
  Receive Date: 20060127
  Receipt Date: 20051215
  Transmission Date: 20060701
  Serious: Yes (Other)
  Sender: FDA-Public Use
  Company Number: 2005169813

PATIENT

DRUGS (1)
  1. LYRICA [Suspect]
     Indication: NEURALGIA
     Dosage: 600 MG (300 MG, 2 IN 1 D)

REACTIONS (3)
  - BODY TEMPERATURE INCREASED [None]
  - PRURITUS [None]
  - RASH GENERALISED [None]
